FAERS Safety Report 6317481-9 (Version None)
Quarter: 2009Q3

REPORT INFORMATION
  Report Type: 
  Country: None (occurrence: None)
  Receive Date: 20090821
  Receipt Date: 20090812
  Transmission Date: 20100115
  Serious: Yes (Life-Threatening, Other)
  Sender: FDA-Public Use
  Company Number: DK-KINGPHARMUSA00001-K200900972

PATIENT
  Age: 25 Year
  Sex: Female

DRUGS (1)
  1. EPIPEN [Suspect]
     Dosage: 0.3 MG, SINGLE
     Dates: start: 20090802, end: 20090802

REACTIONS (7)
  - ACCIDENTAL EXPOSURE [None]
  - CIRCULATORY COLLAPSE [None]
  - INJECTION SITE ISCHAEMIA [None]
  - INJECTION SITE PAIN [None]
  - MALAISE [None]
  - RADIAL PULSE ABNORMAL [None]
  - SUPRAVENTRICULAR TACHYCARDIA [None]
